FAERS Safety Report 11116651 (Version 3)
Quarter: 2016Q3

REPORT INFORMATION
  Report Type: Report from Study
  Country: US (occurrence: US)
  Receive Date: 20150515
  Receipt Date: 20160825
  Transmission Date: 20161109
  Serious: Yes (Other)
  Sender: FDA-Public Use
  Company Number: US-BRISTOL-MYERS SQUIBB COMPANY-12980892

PATIENT
  Age: 34 Year
  Sex: Female

DRUGS (5)
  1. EPIVIR [Suspect]
     Active Substance: LAMIVUDINE
     Indication: HIV INFECTION
     Dosage: 150 MG, INTERMITTENT
     Route: 048
     Dates: start: 20040226
  2. STAVUDINE. [Suspect]
     Active Substance: STAVUDINE
     Indication: HIV INFECTION
     Dosage: 40 MG, BID
     Route: 048
     Dates: start: 20040226, end: 20040817
  3. STAVUDINE. [Suspect]
     Active Substance: STAVUDINE
     Dosage: 30 MG, BID
     Route: 048
     Dates: start: 20040817
  4. KALETRA [Concomitant]
     Active Substance: LOPINAVIR\RITONAVIR
     Indication: HIV INFECTION
     Dosage: 3 DF, INTERMITTENT
     Route: 048
     Dates: start: 20040226
  5. SPORANOX [Concomitant]
     Active Substance: ITRACONAZOLE
     Indication: PRODUCT USED FOR UNKNOWN INDICATION
     Dosage: EXPOSURE IN FIRST TRIMESTER
     Route: 048
     Dates: end: 2004

REACTIONS (4)
  - Cystitis [Recovered/Resolved]
  - Coccidioidomycosis [Not Recovered/Not Resolved]
  - Caesarean section [Recovered/Resolved]
  - Pregnancy [Recovered/Resolved]

NARRATIVE: CASE EVENT DATE: 20050319
